FAERS Safety Report 12366049 (Version 2)
Quarter: 2016Q2

REPORT INFORMATION
  Report Type: Spontaneous
  Country: AT (occurrence: AT)
  Receive Date: 20160513
  Receipt Date: 20160519
  Transmission Date: 20160815
  Serious: Yes (Other)
  Sender: FDA-Public Use
  Company Number: AT-AMGEN-AUTSP2016060353

PATIENT
  Age: 77 Year
  Sex: Male

DRUGS (7)
  1. KYPROLIS [Suspect]
     Active Substance: CARFILZOMIB
     Indication: PRODUCT USED FOR UNKNOWN INDICATION
     Dosage: UNK
     Route: 065
     Dates: start: 201502
  2. KYPROLIS [Suspect]
     Active Substance: CARFILZOMIB
     Dosage: 27 MG/M2, UNK
     Route: 065
  3. AVELOX [Concomitant]
     Active Substance: MOXIFLOXACIN HYDROCHLORIDE
     Dosage: UNK
  4. UNASYN [Concomitant]
     Active Substance: AMPICILLIN SODIUM\SULBACTAM SODIUM
     Dosage: UNK
  5. DEXAMETHASONE. [Concomitant]
     Active Substance: DEXAMETHASONE
     Dosage: 12 MG, UNK
  6. DEXAMETHASONE. [Concomitant]
     Active Substance: DEXAMETHASONE
     Dosage: UNK
     Dates: start: 201502
  7. SALINE [Concomitant]
     Active Substance: SODIUM CHLORIDE
     Dosage: UNK

REACTIONS (13)
  - Dyspnoea [Unknown]
  - Syncope [Unknown]
  - Petechiae [Unknown]
  - Hypoxia [Unknown]
  - Weight increased [Unknown]
  - Pyrexia [Unknown]
  - Anaemia [Unknown]
  - Ecchymosis [Unknown]
  - Disease progression [Unknown]
  - C-reactive protein increased [Unknown]
  - Diabetes mellitus [Unknown]
  - Pneumococcal sepsis [Unknown]
  - Renal failure [Unknown]

NARRATIVE: CASE EVENT DATE: 2015
